FAERS Safety Report 16754287 (Version 1)
Quarter: 2019Q3

REPORT INFORMATION
  Report Type: Spontaneous
  Country: US (occurrence: US)
  Receive Date: 20190829
  Receipt Date: 20190829
  Transmission Date: 20191005
  Serious: No
  Sender: FDA-Public Use
  Company Number: PHEH2019US035688

PATIENT
  Sex: Female

DRUGS (2)
  1. CAFFEINE, ERGOTAMINE [Suspect]
     Active Substance: CAFFEINE\ERGOTAMINE
     Indication: PAIN
     Route: 065
  2. CAFERGOT [Concomitant]
     Active Substance: CAFFEINE\ERGOTAMINE TARTRATE
     Indication: PAIN
     Route: 065

REACTIONS (2)
  - Nervousness [Unknown]
  - Drug ineffective [Unknown]
